FAERS Safety Report 12990288 (Version 2)
Quarter: 2016Q4

REPORT INFORMATION
  Report Type: Report from Study
  Country: JP (occurrence: JP)
  Receive Date: 20161201
  Receipt Date: 20161213
  Transmission Date: 20170207
  Serious: Yes (Hospitalization)
  Sender: FDA-Public Use
  Company Number: JP-CELGENEUS-JPN-2016116237

PATIENT
  Age: 64 Year
  Sex: Male
  Weight: 57 kg

DRUGS (27)
  1. VIDAZA [Suspect]
     Active Substance: AZACITIDINE
     Dosage: 60MG/SQ. METER
     Route: 065
     Dates: start: 20130317, end: 20130321
  2. MOHRUS [Concomitant]
     Active Substance: KETOPROFEN
     Indication: PRODUCT USED FOR UNKNOWN INDICATION
     Route: 065
     Dates: end: 20130123
  3. VIDAZA [Suspect]
     Active Substance: AZACITIDINE
     Dosage: 60MG/SQ. METER
     Route: 065
     Dates: start: 20130902, end: 20130906
  4. VIDAZA [Suspect]
     Active Substance: AZACITIDINE
     Dosage: 60MG/SQ. METER
     Route: 065
     Dates: start: 20131007, end: 20131011
  5. VIDAZA [Suspect]
     Active Substance: AZACITIDINE
     Dosage: 60MG/SQ. METER
     Route: 065
     Dates: start: 20131216, end: 20131220
  6. FEBURIC [Concomitant]
     Active Substance: FEBUXOSTAT
     Indication: PRODUCT USED FOR UNKNOWN INDICATION
     Route: 065
     Dates: start: 20131226
  7. VIDAZA [Suspect]
     Active Substance: AZACITIDINE
     Indication: MYELODYSPLASTIC SYNDROME
     Dosage: 60MG/SQ. METER
     Route: 041
     Dates: start: 20130115, end: 20130119
  8. VIDAZA [Suspect]
     Active Substance: AZACITIDINE
     Dosage: 60MG/SQ. METER
     Route: 065
     Dates: start: 20130520, end: 20130524
  9. VIDAZA [Suspect]
     Active Substance: AZACITIDINE
     Dosage: 60MG/SQ. METER
     Route: 065
     Dates: start: 20140127, end: 20140131
  10. LOXONIN [Concomitant]
     Active Substance: LOXOPROFEN SODIUM
     Indication: PRODUCT USED FOR UNKNOWN INDICATION
     Route: 065
  11. GRACEVIT [Concomitant]
     Active Substance: SITAFLOXACIN
     Indication: PRODUCT USED FOR UNKNOWN INDICATION
     Route: 065
     Dates: start: 20140228, end: 20140305
  12. VIDAZA [Suspect]
     Active Substance: AZACITIDINE
     Dosage: 60MG/SQ. METER
     Route: 065
     Dates: start: 20130213, end: 20130217
  13. VIDAZA [Suspect]
     Active Substance: AZACITIDINE
     Dosage: 60MG/SQ. METER
     Route: 041
     Dates: start: 20140303, end: 20140307
  14. FOIPAN [Concomitant]
     Active Substance: CAMOSTAT MESYLATE
     Indication: PRODUCT USED FOR UNKNOWN INDICATION
     Route: 065
  15. EXJADE [Concomitant]
     Active Substance: DEFERASIROX
     Indication: PRODUCT USED FOR UNKNOWN INDICATION
     Route: 065
     Dates: start: 20130729
  16. MEROPENEM. [Concomitant]
     Active Substance: MEROPENEM
     Indication: PRODUCT USED FOR UNKNOWN INDICATION
     Route: 065
     Dates: start: 20140424, end: 20140501
  17. VIDAZA [Suspect]
     Active Substance: AZACITIDINE
     Dosage: 60MG/SQ. METER
     Route: 065
     Dates: start: 20130115, end: 20130119
  18. VIDAZA [Suspect]
     Active Substance: AZACITIDINE
     Dosage: 60MG/SQ. METER
     Route: 065
     Dates: start: 20130415, end: 20130419
  19. BAKTAR [Concomitant]
     Active Substance: SULFAMETHOXAZOLE\TRIMETHOPRIM
     Indication: PRODUCT USED FOR UNKNOWN INDICATION
     Route: 065
     Dates: start: 20130115
  20. HYDREA [Concomitant]
     Active Substance: HYDROXYUREA
     Indication: PRODUCT USED FOR UNKNOWN INDICATION
     Route: 065
     Dates: start: 20140206
  21. MAOTO [Concomitant]
     Active Substance: HERBALS
     Indication: PRODUCT USED FOR UNKNOWN INDICATION
     Route: 065
     Dates: start: 20140228, end: 20140305
  22. VIDAZA [Suspect]
     Active Substance: AZACITIDINE
     Dosage: 60MG/SQ. METER
     Route: 065
     Dates: start: 20130624, end: 20130628
  23. VIDAZA [Suspect]
     Active Substance: AZACITIDINE
     Dosage: 60MG/SQ. METER
     Route: 065
     Dates: start: 20131111, end: 20131115
  24. METHYLCOOL [Concomitant]
     Indication: PRODUCT USED FOR UNKNOWN INDICATION
     Route: 065
  25. VIDAZA [Suspect]
     Active Substance: AZACITIDINE
     Dosage: 60MG/SQ. METER
     Route: 065
     Dates: start: 20130729, end: 20130802
  26. VIDAZA [Suspect]
     Active Substance: AZACITIDINE
     Dosage: 60MG/SQ. METER
     Route: 041
     Dates: start: 20140407, end: 20140411
  27. AVELOX [Concomitant]
     Active Substance: MOXIFLOXACIN HYDROCHLORIDE
     Indication: PRODUCT USED FOR UNKNOWN INDICATION
     Route: 065
     Dates: start: 20140417, end: 20140426

REACTIONS (11)
  - Platelet count decreased [Not Recovered/Not Resolved]
  - Alanine aminotransferase increased [Recovered/Resolved]
  - Red blood cell count decreased [Recovered/Resolved]
  - White blood cell count decreased [Recovered/Resolved]
  - Epistaxis [Recovered/Resolved]
  - Red blood cell count decreased [Recovered/Resolved]
  - Haemoglobin decreased [Not Recovered/Not Resolved]
  - Haemoglobin decreased [Recovered/Resolved]
  - Haemoglobin decreased [Recovered/Resolved]
  - Aspartate aminotransferase increased [Recovered/Resolved]
  - Red blood cell count decreased [Recovered/Resolved]

NARRATIVE: CASE EVENT DATE: 20130116
